FAERS Safety Report 8505575-9 (Version None)
Quarter: 2012Q3

REPORT INFORMATION
  Report Type: 
  Country: None (occurrence: None)
  Receive Date: 20120712
  Receipt Date: 20120703
  Transmission Date: 20120928
  Serious: Yes (Other)
  Sender: FDA-Public Use
  Company Number: BE-JNJFOC-20120500472

PATIENT
  Sex: Male
  Weight: 106 kg

DRUGS (8)
  1. BISOPROLOL FUMARATE [Interacting]
     Indication: HYPERTENSION
     Route: 048
  2. LIPITOR [Concomitant]
     Dosage: DOSE: 80 DAILY (UNITS UNSPECIFIED)
     Route: 048
  3. AGGRENOX [Concomitant]
     Dosage: DOSE: 200/25 DAILY (UNITS UNSPECIFIED)
     Route: 048
  4. ZYTIGA [Suspect]
     Indication: PRODUCT USED FOR UNKNOWN INDICATION
     Route: 048
  5. XANAX [Concomitant]
     Dosage: DOSE: 0.5 DAILY (UNITS UNSPECIFIED)
     Route: 048
  6. ZOLADEX [Concomitant]
     Dosage: DOSE: 22.5 (UNITS UNSPECIFIED)
     Route: 030
  7. ASPIRIN [Concomitant]
     Dosage: DOSE: 100 DAILY (UNITS UNSPECIFIED)
     Route: 048
  8. PREDNISONE [Concomitant]
     Route: 048

REACTIONS (2)
  - BRADYCARDIA [None]
  - DRUG INTERACTION [None]
